FAERS Safety Report 7763371-4 (Version None)
Quarter: 2011Q3

REPORT INFORMATION
  Report Type: 
  Country: None (occurrence: None)
  Receive Date: 20110920
  Receipt Date: 20110912
  Transmission Date: 20111222
  Serious: Yes (Other)
  Sender: FDA-Public Use
  Company Number: US-ASTRAZENECA-2011SE54735

PATIENT
  Age: 82 Year
  Sex: Female
  Weight: 47.6 kg

DRUGS (4)
  1. LASIX [Concomitant]
     Indication: KIDNEY INFECTION
  2. ANGIOGLIPTIN [Concomitant]
     Indication: HYPERTENSION
  3. SEROQUEL XR [Suspect]
     Route: 048
  4. SEROQUEL XR [Suspect]
     Indication: ANXIETY
     Route: 048

REACTIONS (6)
  - HYPOKINESIA [None]
  - APALLIC SYNDROME [None]
  - DYSPHAGIA [None]
  - HYPOTENSION [None]
  - WRONG TECHNIQUE IN DRUG USAGE PROCESS [None]
  - DEMENTIA [None]
